FAERS Safety Report 8433239-9 (Version None)
Quarter: 2012Q2

REPORT INFORMATION
  Report Type: 
  Country: None (occurrence: None)
  Receive Date: 20120613
  Receipt Date: 20120607
  Transmission Date: 20120825
  Serious: Yes (Hospitalization)
  Sender: FDA-Public Use
  Company Number: US-ROCHE-704435

PATIENT
  Sex: Female
  Weight: 94.3 kg

DRUGS (7)
  1. HERCEPTIN [Suspect]
     Indication: BREAST CANCER
     Dosage: LOADING DOSE; TOTAL DOSE: 762 MG, FORM: VIALS. LAST DOSE PRIOR TO SAE: 12 MARCH 2010
     Route: 042
  2. FLUOCINOLONE ACETONIDE [Concomitant]
     Dosage: DRUG: FLUCINOLONE TOPICAL
  3. CARBOPLATIN [Suspect]
     Indication: BREAST CANCER
     Dosage: DOSE LEVEL: 6 AUC, TOTAL DOSE: 870 MG, FORM: VIAL. DOSE PRIOR TO SAE: 12 MARCH 2010
     Route: 042
  4. ZOFRAN [Concomitant]
     Dosage: TDD WAS UNKNOWN PREVIOUSLY REPORTED AS  8 MG.
  5. METFORMIN HCL [Concomitant]
  6. DOCETAXEL [Suspect]
     Indication: BREAST CANCER
     Dosage: TOTAL DOSE: 150 MG, FORM: VIAL; LAST DOSE PRIOR TO SAE: 12 MARCH 2010
     Route: 042
  7. AMLODIPINE [Concomitant]
     Dosage: DRUG: AMLODIPINE - BENAZEPRIL

REACTIONS (2)
  - HYPOKALAEMIA [None]
  - DEHYDRATION [None]
